FAERS Safety Report 19211398 (Version 1)
Quarter: 2021Q2

REPORT INFORMATION
  Report Type: Spontaneous
  Country: AU (occurrence: AU)
  Receive Date: 20210504
  Receipt Date: 20210504
  Transmission Date: 20210717
  Serious: Yes (Other)
  Sender: FDA-Public Use
  Company Number: AU-LUPIN PHARMACEUTICALS INC.-2020-11811

PATIENT
  Sex: Female

DRUGS (11)
  1. TOFACITINIB [Suspect]
     Active Substance: TOFACITINIB
     Indication: ALOPECIA SCARRING
     Dosage: 2.5 MILLIGRAM
     Route: 060
  2. ISOTRETINOIN. [Concomitant]
     Active Substance: ISOTRETINOIN
     Indication: ALOPECIA SCARRING
     Dosage: UNK
     Route: 065
  3. CLOBETASOL [Suspect]
     Active Substance: CLOBETASOL
     Indication: ALOPECIA SCARRING
     Dosage: UNK
     Route: 061
  4. TRIAMCINOLONE [Suspect]
     Active Substance: TRIAMCINOLONE
     Indication: ALOPECIA SCARRING
     Dosage: UNK
     Route: 026
  5. SECUKINUMAB. [Concomitant]
     Active Substance: SECUKINUMAB
     Dosage: 300 MILLIGRAM 300 MG EVERY 4 WEEKS THEREAFTER
     Route: 058
  6. FUCIDIN [FUSIDATE SODIUM] [Concomitant]
     Active Substance: FUSIDATE SODIUM
     Indication: ALOPECIA SCARRING
     Dosage: UNK
     Route: 065
  7. DOXYCYCLINE. [Concomitant]
     Active Substance: DOXYCYCLINE
     Indication: ALOPECIA SCARRING
     Dosage: UNK
     Route: 065
  8. MINOCYCLINE [Suspect]
     Active Substance: MINOCYCLINE HYDROCHLORIDE
     Indication: ALOPECIA SCARRING
     Dosage: 50 MILLIGRAM, QD
     Route: 065
  9. SECUKINUMAB. [Concomitant]
     Active Substance: SECUKINUMAB
     Indication: ALOPECIA SCARRING
     Dosage: 300 MILLIGRAM 300 MG WAS ADMINISTERED AT WEEKS 0, 1, 2, 3 AND 4
     Route: 058
  10. RIFAMPICIN [Concomitant]
     Active Substance: RIFAMPIN
     Indication: ALOPECIA SCARRING
     Dosage: UNK
     Route: 065
  11. CICLOSPORIN [Suspect]
     Active Substance: CYCLOSPORINE
     Indication: ALOPECIA SCARRING
     Dosage: 100 MILLIGRAM, BID  INITIAL DOSAGE NOT STATED; OVER A 12?MONTH PERIOD THE DOSE WAS SLOWLY INCREASED
     Route: 065

REACTIONS (2)
  - Anaphylactic reaction [Unknown]
  - Therapy non-responder [Unknown]
